FAERS Safety Report 10103137 (Version 1)
Quarter: 2014Q2

REPORT INFORMATION
  Report Type: Spontaneous
  Country: US (occurrence: US)
  Receive Date: 20140424
  Receipt Date: 20140424
  Transmission Date: 20141212
  Serious: No
  Sender: FDA-Public Use
  Company Number: US-BRISTOL-MYERS SQUIBB COMPANY-20115788

PATIENT
  Age: 79 Year
  Sex: Female
  Weight: 72.56 kg

DRUGS (9)
  1. ELIQUIS [Suspect]
  2. COREG [Concomitant]
  3. CITALOPRAM [Concomitant]
  4. RAMIPRIL [Concomitant]
  5. LANOXIN [Concomitant]
  6. TORASEMIDE [Concomitant]
  7. METFORMIN [Concomitant]
  8. FENOFIBRATE [Concomitant]
  9. VERAPAMIL [Concomitant]

REACTIONS (2)
  - Contusion [Unknown]
  - Weight decreased [Unknown]
